FAERS Safety Report 7602055-X (Version None)
Quarter: 2011Q3

REPORT INFORMATION
  Report Type: 
  Country: None (occurrence: None)
  Receive Date: 20110711
  Receipt Date: 20110630
  Transmission Date: 20111222
  Serious: Yes (Hospitalization, Other)
  Sender: FDA-Public Use
  Company Number: ES-SANOFI-AVENTIS-2011SA041474

PATIENT
  Sex: Male

DRUGS (1)
  1. ELOXATIN [Suspect]
     Route: 042
     Dates: start: 20110627

REACTIONS (1)
  - PNEUMOTHORAX [None]
